FAERS Safety Report 16134800 (Version 1)
Quarter: 2019Q1

REPORT INFORMATION
  Report Type: Spontaneous
  Country: DE (occurrence: DE)
  Receive Date: 20190329
  Receipt Date: 20190329
  Transmission Date: 20190418
  Serious: Yes (Hospitalization, Other)
  Sender: FDA-Public Use
  Company Number: DE-MYLANLABS-2019M1027745

PATIENT
  Age: 44 Year
  Sex: Male

DRUGS (3)
  1. VALPROIC ACID. [Interacting]
     Active Substance: VALPROIC ACID
     Indication: PRODUCT USED FOR UNKNOWN INDICATION
     Dosage: UNK
  2. LAMOTRIGINE. [Suspect]
     Active Substance: LAMOTRIGINE
     Indication: EPILEPSY
     Dosage: STARTED WITH 200 MG/DAY AND INCREASED TO 375 MG BY STEPWISE 25 MG EVERY OTHER DAY
     Route: 048
  3. PHENYTOIN. [Interacting]
     Active Substance: PHENYTOIN
     Indication: EPILEPSY
     Dosage: DAILY DOSE: 400 MG MILLIGRAM(S) EVERY DAY
     Route: 065

REACTIONS (13)
  - Speech disorder [Unknown]
  - Labelled drug-drug interaction medication error [Recovered/Resolved]
  - Paranoia [Recovered/Resolved]
  - Psychotic disorder [Recovered/Resolved]
  - Dizziness [Unknown]
  - Drug level increased [Recovered/Resolved]
  - Ataxia [Recovered/Resolved]
  - Delusion [Recovered/Resolved]
  - Nausea [Unknown]
  - Dysarthria [Recovered/Resolved]
  - Agitation [Recovered/Resolved]
  - Gait disturbance [Recovered/Resolved]
  - Seizure [Unknown]
